FAERS Safety Report 7649556-6 (Version None)
Quarter: 2011Q3

REPORT INFORMATION
  Report Type: 
  Country: None (occurrence: None)
  Receive Date: 20110802
  Receipt Date: 20110719
  Transmission Date: 20111222
  Serious: Yes (Hospitalization)
  Sender: FDA-Public Use
  Company Number: US-RANBAXY-2011RR-46476

PATIENT
  Sex: Female

DRUGS (11)
  1. LEVAQUIN [Suspect]
     Dosage: 250 MG, UNK
     Route: 065
  2. PREDNISONE [Concomitant]
     Dosage: 20 MG, UNK
     Route: 065
  3. TYLENOL-500 [Concomitant]
     Indication: PAIN
     Dosage: 650 MG, QID
     Route: 065
  4. PREDNISONE [Concomitant]
     Indication: SYSTEMIC LUPUS ERYTHEMATOSUS
     Dosage: 2.5 MG, UNK
     Route: 065
  5. LEVAQUIN [Suspect]
     Dosage: 500 MG, QD
     Route: 065
  6. PREDNISONE [Concomitant]
     Indication: ANTIINFLAMMATORY THERAPY
     Route: 065
  7. LEVAQUIN [Suspect]
     Indication: PNEUMONIA
     Dosage: 750 MG, UNK
     Route: 048
  8. FLUCONAZOLE [Suspect]
     Indication: PNEUMONIA
     Route: 065
  9. PREDNISONE [Concomitant]
     Indication: ASTHMA
     Dosage: 5 MG, UNK
     Route: 065
  10. METHOTREXATE [Concomitant]
     Indication: SYSTEMIC LUPUS ERYTHEMATOSUS
     Route: 065
  11. LEVAQUIN [Suspect]
     Dosage: UNK MG, QD
     Route: 042

REACTIONS (2)
  - DEPRESSION [None]
  - STEVENS-JOHNSON SYNDROME [None]
